FAERS Safety Report 5625605-1 (Version None)
Quarter: 2008Q1

REPORT INFORMATION
  Report Type: 
  Country: None (occurrence: None)
  Receive Date: 20080208
  Receipt Date: 20080208
  Transmission Date: 20080703
  Serious: Yes (Death)
  Sender: FDA-Public Use
  Company Number: None

PATIENT
  Age: 70 Year
  Sex: Male

DRUGS (4)
  1. ADENOSINE [Suspect]
     Indication: SUPRAVENTRICULAR TACHYCARDIA
     Dosage: 140UG/KG/MIN MIN. IV
     Route: 042
     Dates: start: 20071101
  2. PRESSUREWIRE (R) CORTUS INTRODUCER NEEDLE [Concomitant]
  3. INTRODUCER WIRE [Concomitant]
  4. SHEATH DIAGNOSTIC GUIDEWIRE [Concomitant]

REACTIONS (3)
  - CARDIAC ARREST [None]
  - CARDIOMYOPATHY [None]
  - CORONARY ARTERY DISEASE [None]
